FAERS Safety Report 17441403 (Version 1)
Quarter: 2020Q1

REPORT INFORMATION
  Report Type: Spontaneous
  Country: IT (occurrence: IT)
  Receive Date: 20200220
  Receipt Date: 20200220
  Transmission Date: 20200409
  Serious: Yes (Other)
  Sender: FDA-Public Use
  Company Number: IT-SA-2020SA043344

PATIENT
  Sex: Female

DRUGS (2)
  1. INTERFERON [Concomitant]
     Active Substance: INTERFERON
  2. AUBAGIO [Suspect]
     Active Substance: TERIFLUNOMIDE
     Dosage: UNK
     Route: 065

REACTIONS (1)
  - Adenocarcinoma gastric [Unknown]
